FAERS Safety Report 24620879 (Version 3)
Quarter: 2025Q3

REPORT INFORMATION
  Report Type: Spontaneous
  Country: GB (occurrence: GB)
  Receive Date: 20241114
  Receipt Date: 20250802
  Transmission Date: 20251021
  Serious: Yes (Other)
  Sender: ALEXION PHARMACEUTICALS
  Company Number: GB-MHRA-TPP16696769C9486070YC1730471685874

PATIENT
  Age: 69 Year
  Sex: Male
  Weight: 64 kg

DRUGS (11)
  1. TICAGRELOR [Suspect]
     Active Substance: TICAGRELOR
     Indication: Ill-defined disorder
     Route: 065
     Dates: start: 20240718
  2. COLCHICINE [Concomitant]
     Active Substance: COLCHICINE
     Indication: Ill-defined disorder
  3. FAMOTIDINE [Concomitant]
     Active Substance: FAMOTIDINE
     Indication: Ill-defined disorder
     Route: 065
  4. LANSOPRAZOLE [Concomitant]
     Active Substance: LANSOPRAZOLE
     Indication: Ill-defined disorder
     Dosage: UNK, QD
     Route: 065
     Dates: start: 20240724
  5. ROSUVASTATIN [Concomitant]
     Active Substance: ROSUVASTATIN
     Indication: Ill-defined disorder
     Dosage: UNK, QD
     Route: 065
     Dates: start: 20240109
  6. ASPIRIN [Concomitant]
     Active Substance: ASPIRIN
     Indication: Ill-defined disorder
     Route: 065
  7. TOLTERODINE TARTRATE [Concomitant]
     Active Substance: TOLTERODINE TARTRATE
     Indication: Ill-defined disorder
     Route: 065
  8. BISOPROLOL [Concomitant]
     Active Substance: BISOPROLOL
     Indication: Ill-defined disorder
     Dosage: UNK, QD
     Route: 065
     Dates: start: 20240724, end: 20240903
  9. NITROGLYCERIN [Concomitant]
     Active Substance: NITROGLYCERIN
     Indication: Ill-defined disorder
     Route: 065
  10. ISOSORBIDE MONONITRATE [Concomitant]
     Active Substance: ISOSORBIDE MONONITRATE
     Indication: Ill-defined disorder
     Dosage: UNK, QD
     Route: 065
     Dates: start: 20240724
  11. CLOPIDOGREL [Concomitant]
     Active Substance: CLOPIDOGREL BISULFATE
     Indication: Ill-defined disorder
     Dosage: UNK, QD
     Route: 065
     Dates: start: 20241022

REACTIONS (2)
  - Fatigue [Recovered/Resolved]
  - Muscular weakness [Recovered/Resolved]
